FAERS Safety Report 4964810-4 (Version None)
Quarter: 2006Q2

REPORT INFORMATION
  Report Type: 
  Country: None (occurrence: None)
  Receive Date: 20060403
  Receipt Date: 20060228
  Transmission Date: 20061013
  Serious: Yes (Other)
  Sender: FDA-Public Use
  Company Number: FRPFM-S-20060038 - V001

PATIENT
  Age: 72 Year
  Sex: Male

DRUGS (5)
  1. NAVELBINE [Suspect]
     Indication: LUNG NEOPLASM MALIGNANT
     Route: 042
     Dates: start: 20060111, end: 20060124
  2. CISPLATIN [Concomitant]
  3. SOLU-MEDROL [Concomitant]
  4. MANNIT 20% [Concomitant]
  5. ANZEMET [Concomitant]

REACTIONS (2)
  - EXTRAVASATION [None]
  - INJECTION SITE REACTION [None]
